FAERS Safety Report 6310787-9 (Version None)
Quarter: 2009Q3

REPORT INFORMATION
  Report Type: 
  Country: None (occurrence: None)
  Receive Date: 20090812
  Receipt Date: 20090731
  Transmission Date: 20100115
  Serious: Yes (Death, Hospitalization)
  Sender: FDA-Public Use
  Company Number: 2009-02468

PATIENT
  Age: 62 Year
  Sex: Male
  Weight: 73.4 kg

DRUGS (1)
  1. VELCADE [Suspect]
     Indication: MULTIPLE MYELOMA
     Dosage: 1 MG/M2,  INTRAVENOUS
     Route: 042
     Dates: start: 20081223, end: 20090209

REACTIONS (6)
  - BLOOD POTASSIUM DECREASED [None]
  - CLOSTRIDIUM DIFFICILE COLITIS [None]
  - DISEASE PROGRESSION [None]
  - PANCYTOPENIA [None]
  - PNEUMONIA [None]
  - URINARY RETENTION [None]
